FAERS Safety Report 16789091 (Version 1)
Quarter: 2019Q3

REPORT INFORMATION
  Report Type: Report from Study
  Country: IE (occurrence: IE)
  Receive Date: 20190910
  Receipt Date: 20190910
  Transmission Date: 20191005
  Serious: Yes (Hospitalization)
  Sender: FDA-Public Use
  Company Number: IE-TAKEDA-2019TUS051430

PATIENT
  Sex: Female

DRUGS (1)
  1. IXAZOMIB [Suspect]
     Active Substance: IXAZOMIB
     Indication: PLASMA CELL MYELOMA
     Dosage: UNK
     Route: 048
     Dates: start: 20190828

REACTIONS (2)
  - Pneumonia [Not Recovered/Not Resolved]
  - Humerus fracture [Not Recovered/Not Resolved]

NARRATIVE: CASE EVENT DATE: 20190905
